FAERS Safety Report 5947659-5 (Version None)
Quarter: 2008Q4

REPORT INFORMATION
  Report Type: 
  Country: None (occurrence: None)
  Receive Date: 20081107
  Receipt Date: 20081024
  Transmission Date: 20090506
  Serious: Yes (Other)
  Sender: FDA-Public Use
  Company Number: 2008S1019350

PATIENT
  Age: 58 Year
  Sex: Female

DRUGS (2)
  1. IBUPROFEN [Suspect]
     Indication: ANALGESIA
     Dosage: 600 MG; ; ORAL
     Route: 048
     Dates: start: 20040101
  2. METHYLPREDNISOLONE 16MG TAB [Concomitant]

REACTIONS (1)
  - HEPATIC STEATOSIS [None]
